FAERS Safety Report 8427445-7 (Version None)
Quarter: 2012Q2

REPORT INFORMATION
  Report Type: 
  Country: None (occurrence: None)
  Receive Date: 20120611
  Receipt Date: 20111028
  Transmission Date: 20120825
  Serious: Yes (Hospitalization)
  Sender: FDA-Public Use
  Company Number: US-BAYER-2012-054920

PATIENT
  Age: 72 Year
  Sex: Female

DRUGS (2)
  1. NAPROXEN SODIUM [Suspect]
  2. CIPROFLOXACIN [Suspect]

REACTIONS (1)
  - ANAPHYLACTIC REACTION [None]
